FAERS Safety Report 12154291 (Version 1)
Quarter: 2016Q1

REPORT INFORMATION
  Report Type: Spontaneous
  Country: US (occurrence: None)
  Receive Date: 20160304
  Receipt Date: 20160304
  Transmission Date: 20160526
  Serious: No
  Sender: FDA-Public Use
  Company Number: None

PATIENT
  Age: 62 Year
  Sex: Female

DRUGS (1)
  1. TIMOLOL. [Suspect]
     Active Substance: TIMOLOL

REACTIONS (5)
  - Eyelids pruritus [None]
  - Pain [None]
  - Swelling face [None]
  - Eye disorder [None]
  - Self-medication [None]
